FAERS Safety Report 18677922 (Version 1)
Quarter: 2020Q4

REPORT INFORMATION
  Report Type: Spontaneous
  Country: US (occurrence: US)
  Receive Date: 20201229
  Receipt Date: 20201229
  Transmission Date: 20210114
  Serious: No
  Sender: FDA-Public Use
  Company Number: US-PFIZER INC-2020511943

PATIENT

DRUGS (2)
  1. SILDENAFIL CITRATE. [Suspect]
     Active Substance: SILDENAFIL CITRATE
     Indication: DYSPNOEA
  2. SILDENAFIL CITRATE. [Suspect]
     Active Substance: SILDENAFIL CITRATE
     Indication: CHEST DISCOMFORT
     Dosage: UNK

REACTIONS (4)
  - Drug effective for unapproved indication [Unknown]
  - Blood pressure decreased [Unknown]
  - Intentional product use issue [Unknown]
  - Therapeutic response unexpected [Unknown]
